FAERS Safety Report 7286536-7 (Version None)
Quarter: 2011Q1

REPORT INFORMATION
  Report Type: 
  Country: None (occurrence: None)
  Receive Date: 20110210
  Receipt Date: 20110128
  Transmission Date: 20110831
  Serious: Yes (Hospitalization)
  Sender: FDA-Public Use
  Company Number: MX-ELI_LILLY_AND_COMPANY-MX201101005181

PATIENT
  Age: 57 Year
  Sex: Male

DRUGS (1)
  1. CIALIS [Suspect]
     Indication: ERECTILE DYSFUNCTION
     Dosage: UNK UNK, UNKNOWN
     Route: 048
     Dates: start: 20110115

REACTIONS (5)
  - HYPERTENSION [None]
  - DYSLIPIDAEMIA [None]
  - WRONG TECHNIQUE IN DRUG USAGE PROCESS [None]
  - ARTERIOSCLEROSIS [None]
  - INFARCTION [None]
